FAERS Safety Report 6059498-8 (Version None)
Quarter: 2009Q1

REPORT INFORMATION
  Report Type: 
  Country: None (occurrence: None)
  Receive Date: 20090127
  Receipt Date: 20090127
  Transmission Date: 20090719
  Serious: Yes (Hospitalization)
  Sender: FDA-Public Use
  Company Number: None

PATIENT
  Age: 72 Year
  Sex: Female
  Weight: 68.4 kg

DRUGS (8)
  1. DOCETAXEL [Suspect]
  2. CISPLATIN [Suspect]
  3. FLUOROURACIL [Suspect]
  4. PROTONIX [Concomitant]
  5. MORPHINE [Concomitant]
  6. ZOFRAN [Concomitant]
  7. PHENERGAN HCL [Concomitant]
  8. MAGNESIUM OXIDE [Concomitant]

REACTIONS (4)
  - DEHYDRATION [None]
  - HYPOKALAEMIA [None]
  - NAUSEA [None]
  - VOMITING [None]
